FAERS Safety Report 7935760-6 (Version None)
Quarter: 2011Q4

REPORT INFORMATION
  Report Type: 
  Country: None (occurrence: None)
  Receive Date: 20111123
  Receipt Date: 20111110
  Transmission Date: 20120403
  Serious: Yes (Hospitalization, Other)
  Sender: FDA-Public Use
  Company Number: US-BAYER-2011-106052

PATIENT
  Age: 67 Year
  Sex: Female
  Weight: 70.9 kg

DRUGS (15)
  1. LOSARTAN POTASSIUM [Concomitant]
  2. SORAFENIB (RAF KINASE INHIBITOR) [Suspect]
     Dosage: 400 MG, QD
     Route: 048
     Dates: start: 20111011, end: 20111026
  3. ALBUTEROL [Concomitant]
  4. OMEPRAZOLE [Concomitant]
  5. BENZONATATE [Concomitant]
  6. LEVOTHYROXINE SODIUM [Concomitant]
  7. SORAFENIB (RAF KINASE INHIBITOR) [Suspect]
     Indication: NON-SMALL CELL LUNG CANCER
     Dosage: 400 MG, BID
     Route: 048
     Dates: start: 20110928
  8. TYLENOL W/ CODEINE NO. 3 [Concomitant]
  9. OXYCODONE HCL [Concomitant]
  10. AMLODIPINE [Concomitant]
  11. UREA [Concomitant]
  12. CLOBETASOL [Concomitant]
  13. FOLIC ACID [Concomitant]
  14. LORAZEPAM [Concomitant]
  15. WARFARIN SODIUM [Concomitant]
     Indication: PULMONARY EMBOLISM
     Dosage: UNK
     Dates: start: 20110328

REACTIONS (6)
  - NON-SMALL CELL LUNG CANCER [None]
  - DYSPNOEA [None]
  - PLEURAL EFFUSION [None]
  - RASH [None]
  - PULMONARY EMBOLISM [None]
  - HYPERTENSION [None]
